FAERS Safety Report 15533922 (Version 1)
Quarter: 2018Q4

REPORT INFORMATION
  Report Type: Spontaneous
  Country: FR (occurrence: FR)
  Receive Date: 20181019
  Receipt Date: 20181019
  Transmission Date: 20190205
  Serious: Yes (Hospitalization)
  Sender: FDA-Public Use
  Company Number: FR-PFIZER INC-2018414047

PATIENT
  Age: 50 Year
  Sex: Male
  Weight: 53 kg

DRUGS (3)
  1. DALACINE [Suspect]
     Active Substance: CLINDAMYCIN
     Indication: OSTEITIS
     Route: 048
     Dates: start: 20180404, end: 20180419
  2. PIPERACILLINE [PIPERACILLIN] [Suspect]
     Active Substance: PIPERACILLIN
     Indication: OSTEITIS
     Route: 041
     Dates: start: 20180328, end: 20180418
  3. CIFLOX [CIPROFLOXACIN HYDROCHLORIDE;HYDROCORTISONE] [Concomitant]
     Active Substance: CIPROFLOXACIN HYDROCHLORIDE\HYDROCORTISONE
     Indication: OSTEITIS
     Route: 048
     Dates: start: 20180328, end: 20180419

REACTIONS (3)
  - Eosinophilia [Recovered/Resolved]
  - Erythema [Recovered/Resolved]
  - Hyperthermia [Recovered/Resolved]

NARRATIVE: CASE EVENT DATE: 20180414
